FAERS Safety Report 8783831 (Version 1)
Quarter: 2012Q4

REPORT INFORMATION
  Report Type: Spontaneous
  Country: US (occurrence: None)
  Receive Date: 20120906
  Receipt Date: 20120906
  Transmission Date: 20130627
  Serious: Yes (Hospitalization)
  Sender: FDA-Public Use
  Company Number: None

PATIENT
  Age: 34 Year
  Sex: Male
  Weight: 101.7 kg

DRUGS (2)
  1. VANCOMYCIN [Suspect]
     Indication: PNEUMONIA
     Dosage: 2000mg/500mL // once/q12h  IV bolus
1250mg/250mL
     Dates: start: 20120830, end: 20120901
  2. LASIX [Suspect]
     Indication: FLUID OVERLOAD
     Dosage: Lasix 20mg/2mL once IV bolus
     Dates: start: 20120830, end: 20120830

REACTIONS (1)
  - Blood creatinine increased [None]
